FAERS Safety Report 12240767 (Version 1)
Quarter: 2016Q2

REPORT INFORMATION
  Report Type: Spontaneous
  Country: US (occurrence: US)
  Receive Date: 20160406
  Receipt Date: 20160406
  Transmission Date: 20160815
  Serious: No
  Sender: FDA-Public Use
  Company Number: US-TEVA-551242USA

PATIENT
  Sex: Male

DRUGS (1)
  1. SUCRALFATE. [Suspect]
     Active Substance: SUCRALFATE
     Indication: OESOPHAGEAL DISORDER
     Route: 048

REACTIONS (5)
  - Abdominal discomfort [Unknown]
  - Eructation [Unknown]
  - Headache [Unknown]
  - Diarrhoea [Unknown]
  - Gastrointestinal disorder [Unknown]
